FAERS Safety Report 8433386-1 (Version None)
Quarter: 2012Q2

REPORT INFORMATION
  Report Type: 
  Country: None (occurrence: None)
  Receive Date: 20120607
  Receipt Date: 20120524
  Transmission Date: 20120825
  Serious: Yes (Hospitalization, Other)
  Sender: FDA-Public Use
  Company Number: 20120010

PATIENT
  Age: 40 Year
  Sex: Female

DRUGS (2)
  1. VENOFER [Suspect]
     Indication: ANAEMIA
     Route: 042
     Dates: start: 20111227
  2. VENOFER [Suspect]
     Indication: ANAEMIA
     Dosage: 2 DOSES INTRAVENOUS
     Route: 042
     Dates: start: 20111231

REACTIONS (8)
  - PHLEBITIS [None]
  - CAESAREAN SECTION [None]
  - MATERNAL EXPOSURE DURING PREGNANCY [None]
  - JUGULAR VEIN THROMBOSIS [None]
  - LUNG INFECTION [None]
  - PROCEDURAL PAIN [None]
  - PREMATURE DELIVERY [None]
  - POST PROCEDURAL SWELLING [None]
